FAERS Safety Report 9053078 (Version 1)
Quarter: 2013Q1

REPORT INFORMATION
  Report Type: Spontaneous
  Country: US (occurrence: US)
  Receive Date: 20130208
  Receipt Date: 20130208
  Transmission Date: 20140127
  Serious: No
  Sender: FDA-Public Use
  Company Number: US-BIOGENIDEC-2013BI010027

PATIENT
  Sex: Female

DRUGS (3)
  1. TYSABRI [Suspect]
     Indication: MULTIPLE SCLEROSIS
     Route: 042
     Dates: start: 20070418, end: 20091124
  2. TYSABRI [Suspect]
     Indication: MULTIPLE SCLEROSIS
     Route: 042
     Dates: start: 20110912, end: 20111003
  3. TYSABRI [Suspect]
     Indication: MULTIPLE SCLEROSIS
     Route: 042
     Dates: start: 20120627

REACTIONS (9)
  - Muscular weakness [Unknown]
  - Gait disturbance [Unknown]
  - Mobility decreased [Unknown]
  - Dysstasia [Unknown]
  - Urinary incontinence [Unknown]
  - Muscle spasms [Unknown]
  - Dysphagia [Unknown]
  - Decreased appetite [Unknown]
  - Headache [Unknown]
